FAERS Safety Report 8782783 (Version 1)
Quarter: 2012Q4

REPORT INFORMATION
  Report Type: 
  Country: FR (occurrence: FR)
  Receive Date: 20120913
  Receipt Date: 20120913
  Transmission Date: 20130627
  Serious: Yes (Hospitalization, Other)
  Sender: FDA-Public Use
  Company Number: FR-ASTRAZENECA-2012SE70343

PATIENT
  Age: 73 Year
  Sex: Male

DRUGS (9)
  1. CRESTOR [Suspect]
     Route: 048
     Dates: end: 20120801
  2. LOXAPAC [Suspect]
     Route: 048
     Dates: start: 20120727, end: 20120801
  3. VISKEN [Concomitant]
     Route: 048
  4. RIVOTRIL [Concomitant]
     Route: 048
     Dates: start: 20120726
  5. ATHYMIL [Concomitant]
     Route: 048
  6. LORAZEPAM [Concomitant]
  7. ZOPICLONE [Concomitant]
  8. CITALOPRAM [Concomitant]
     Dates: start: 201205
  9. OXAZEPAM [Concomitant]

REACTIONS (8)
  - Dyspnoea [Unknown]
  - Palpitations [Unknown]
  - Grand mal convulsion [Unknown]
  - Urinary retention [Unknown]
  - Confusional state [Unknown]
  - Agitation [Unknown]
  - Hepatocellular injury [Recovered/Resolved]
  - Rhabdomyolysis [Recovered/Resolved]
